FAERS Safety Report 15275318 (Version 1)
Quarter: 2018Q3

REPORT INFORMATION
  Report Type: Spontaneous
  Country: US (occurrence: US)
  Receive Date: 20180814
  Receipt Date: 20180814
  Transmission Date: 20181010
  Serious: No
  Sender: FDA-Public Use
  Company Number: US-TEVA-2018-US-898473

PATIENT
  Sex: Male

DRUGS (6)
  1. RIBOFLAVIN [Concomitant]
     Active Substance: RIBOFLAVIN
     Indication: EVIDENCE BASED TREATMENT
     Route: 065
  2. COQ [Concomitant]
     Indication: EVIDENCE BASED TREATMENT
     Dosage: 15 MG/KG/DAY
     Route: 065
  3. BIOTIN [Concomitant]
     Active Substance: BIOTIN
     Indication: EVIDENCE BASED TREATMENT
     Route: 065
  4. THIAMINE [Concomitant]
     Active Substance: THIAMINE
     Indication: EVIDENCE BASED TREATMENT
     Route: 065
  5. BOTOX [Concomitant]
     Active Substance: ONABOTULINUMTOXINA
     Route: 065
  6. BACLOFEN. [Suspect]
     Active Substance: BACLOFEN
     Route: 065

REACTIONS (1)
  - Hallucination [Unknown]
